FAERS Safety Report 7039717-1 (Version None)
Quarter: 2010Q3

REPORT INFORMATION
  Report Type: 
  Country: None (occurrence: None)
  Receive Date: 20100929
  Receipt Date: 20100802
  Transmission Date: 20110219
  Serious: No
  Sender: FDA-Public Use
  Company Number: US-WYE-H16678710

PATIENT
  Age: 55 Year
  Sex: Male
  Weight: 90.8 kg

DRUGS (8)
  1. PRISTIQ [Suspect]
     Indication: ANXIETY
     Dosage: 50 MG 1X PER 1 DAY, ORAL
     Route: 048
     Dates: start: 20100718
  2. PRISTIQ [Suspect]
     Indication: DEPRESSION
     Dosage: 50 MG 1X PER 1 DAY, ORAL
     Route: 048
     Dates: start: 20100718
  3. CELEXA [Suspect]
     Indication: ANXIETY
     Dosage: 40 MG 1X PER 1 DAY, ORAL
     Route: 048
     Dates: start: 20080101, end: 20100701
  4. CELEXA [Suspect]
     Indication: DEPRESSION
     Dosage: 40 MG 1X PER 1 DAY, ORAL
     Route: 048
     Dates: start: 20080101, end: 20100701
  5. SUDAFED 12 HOUR [Concomitant]
  6. FLONASE [Concomitant]
  7. TRILIPIX [Concomitant]
  8. IBUPROFEN [Concomitant]

REACTIONS (9)
  - BACK PAIN [None]
  - BODY TEMPERATURE INCREASED [None]
  - DRUG INTERACTION [None]
  - HEADACHE [None]
  - MUSCULOSKELETAL PAIN [None]
  - MUSCULOSKELETAL STIFFNESS [None]
  - NECK PAIN [None]
  - NIGHT SWEATS [None]
  - SOMNOLENCE [None]
